FAERS Safety Report 11875646 (Version 1)
Quarter: 2015Q4

REPORT INFORMATION
  Report Type: Spontaneous
  Country: IT (occurrence: IT)
  Receive Date: 20151229
  Receipt Date: 20151229
  Transmission Date: 20160305
  Serious: Yes (Other)
  Sender: FDA-Public Use
  Company Number: PHHY2015IT167041

PATIENT
  Age: 79 Year
  Sex: Male

DRUGS (5)
  1. MEROPENEM HIKMA [Concomitant]
     Active Substance: MEROPENEM
     Indication: ABDOMINAL ABSCESS
     Dosage: 2000 MG, UNK
     Route: 041
     Dates: start: 20151125, end: 20151130
  2. AMOXICILLIN+CLAVULANATE SANDOZ [Suspect]
     Active Substance: AMOXICILLIN\CLAVULANATE POTASSIUM
     Indication: BACTERIAL INFECTION
     Dosage: 2.2 G, ONCE/SINGLE
     Route: 041
     Dates: start: 20151201, end: 20151201
  3. OLIMEL [Concomitant]
     Active Substance: AMINO ACIDS\DEXTROSE\SOYBEAN OIL
     Indication: PARENTERAL NUTRITION
     Route: 065
  4. PARACETAMOLO [Concomitant]
     Active Substance: ACETAMINOPHEN
     Indication: POSTOPERATIVE ANALGESIA
     Dosage: 3 G, UNK
     Route: 041
     Dates: start: 20151125, end: 20151201
  5. CERNEVIT                           /07338401/ [Concomitant]
     Indication: PARENTERAL NUTRITION
     Route: 042
     Dates: end: 20151201

REACTIONS (7)
  - Hypotension [Unknown]
  - Asthenia [Recovered/Resolved]
  - Pain [Recovered/Resolved]
  - Hyperhidrosis [Recovered/Resolved]
  - Rash [Recovered/Resolved]
  - Malaise [Recovered/Resolved]
  - Tachycardia [Recovered/Resolved]

NARRATIVE: CASE EVENT DATE: 20151201
